FAERS Safety Report 5126332-X (Version None)
Quarter: 2006Q4

REPORT INFORMATION
  Report Type: 
  Country: None (occurrence: None)
  Receive Date: 20061010
  Receipt Date: 20060928
  Transmission Date: 20070319
  Serious: Yes (Hospitalization)
  Sender: FDA-Public Use
  Company Number: 2006BI012584

PATIENT
  Age: 60 Year
  Sex: Female

DRUGS (10)
  1. AVONEX [Suspect]
     Indication: MULTIPLE SCLEROSIS
     Dosage: IM
     Route: 030
     Dates: start: 19971001, end: 20000901
  2. COPAXONE [Concomitant]
  3. DITROPAN [Concomitant]
  4. ZESTRIL [Concomitant]
  5. ZANTAC [Concomitant]
  6. PREMARIN [Concomitant]
  7. ATIVAN [Concomitant]
  8. ZANAFLEX [Concomitant]
  9. NEURONTIN [Concomitant]
  10. AMITRIPTYLINE HCL [Concomitant]

REACTIONS (1)
  - OVARIAN CYST [None]
